FAERS Safety Report 7557505-4 (Version None)
Quarter: 2011Q2

REPORT INFORMATION
  Report Type: 
  Country: None (occurrence: None)
  Receive Date: 20110620
  Receipt Date: 20110610
  Transmission Date: 20111010
  Serious: Yes (Other)
  Sender: FDA-Public Use
  Company Number: US-JNJFOC-20101206253

PATIENT

DRUGS (1)
  1. LEVAQUIN [Suspect]
     Indication: INFECTION
     Route: 065
     Dates: start: 20100401

REACTIONS (4)
  - ASTHENIA [None]
  - PAIN [None]
  - CONFUSIONAL STATE [None]
  - DISABILITY [None]
